FAERS Safety Report 9639876 (Version 1)
Quarter: 2013Q4

REPORT INFORMATION
  Report Type: Spontaneous
  Country: US (occurrence: None)
  Receive Date: 20131021
  Receipt Date: 20131021
  Transmission Date: 20140711
  Serious: Yes (Other)
  Sender: FDA-Public Use
  Company Number: None

PATIENT
  Age: 59 Year
  Sex: Female
  Weight: 44.45 kg

DRUGS (1)
  1. FORTEO [Suspect]
     Indication: OSTEOPOROSIS
     Dosage: METERED INJECTION ONCE DAILY GIVEN INTO/UNDER THE SKIN 20 MCG
     Dates: start: 20130628, end: 20130904

REACTIONS (1)
  - Bone pain [None]
